FAERS Safety Report 17188475 (Version 1)
Quarter: 2019Q4

REPORT INFORMATION
  Report Type: Report from Study
  Country: US (occurrence: US)
  Receive Date: 20191222
  Receipt Date: 20191222
  Transmission Date: 20200122
  Serious: No
  Sender: FDA-Public Use
  Company Number: US-ORION CORPORATION ORION PHARMA-ENTC2018-0360

PATIENT
  Sex: Male
  Weight: 93.9 kg

DRUGS (11)
  1. DILTIAZEM. [Concomitant]
     Active Substance: DILTIAZEM
     Route: 065
  2. ATENOLOL. [Concomitant]
     Active Substance: ATENOLOL
     Route: 065
  3. HYDROXYZINE HCL [Concomitant]
     Active Substance: HYDROXYZINE HYDROCHLORIDE
     Route: 065
  4. LEVODOPA-CARBIDOPA-ENTACAPONE (TRADE NAME UNKNOWN) [Suspect]
     Active Substance: CARBIDOPA\ENTACAPONE\LEVODOPA
     Indication: PRODUCT USED FOR UNKNOWN INDICATION
     Dosage: STRENGTH: 150/37.5/200 MG
     Route: 065
  5. GOCOVRI [Suspect]
     Active Substance: AMANTADINE
     Indication: DYSKINESIA
     Dosage: AT BEDTIME
     Route: 048
     Dates: start: 20180901, end: 20180907
  6. ROPINIROLE. [Concomitant]
     Active Substance: ROPINIROLE
     Route: 065
  7. ASPIRIN. [Concomitant]
     Active Substance: ASPIRIN
     Route: 065
  8. GOCOVRI [Suspect]
     Active Substance: AMANTADINE
     Dosage: AT BEDTIME
     Route: 048
     Dates: start: 20180908, end: 201809
  9. GOCOVRI [Suspect]
     Active Substance: AMANTADINE
     Dosage: AT BEDTIME
     Route: 048
     Dates: start: 2018
  10. FUROSEMIDE. [Concomitant]
     Active Substance: FUROSEMIDE
     Route: 065
  11. GOCOVRI [Suspect]
     Active Substance: AMANTADINE
     Dosage: AT BEDTIME
     Route: 048
     Dates: start: 201809, end: 2018

REACTIONS (20)
  - Fall [Unknown]
  - Insomnia [Unknown]
  - Fear-related avoidance of activities [Not Recovered/Not Resolved]
  - Joint swelling [Unknown]
  - Fatigue [Unknown]
  - Hallucination, visual [Not Recovered/Not Resolved]
  - Peripheral swelling [Unknown]
  - Dysstasia [Unknown]
  - Therapeutic response shortened [Unknown]
  - Gait disturbance [Unknown]
  - Hypotension [Unknown]
  - Gait inability [Unknown]
  - Dyskinesia [Recovered/Resolved]
  - Bedridden [Unknown]
  - Drug interaction [Unknown]
  - Limb discomfort [Recovering/Resolving]
  - Muscular weakness [Unknown]
  - Visual impairment [Unknown]
  - Malaise [Unknown]
  - Middle insomnia [Unknown]

NARRATIVE: CASE EVENT DATE: 2018
